FAERS Safety Report 5983735-9 (Version None)
Quarter: 2008Q4

REPORT INFORMATION
  Report Type: 
  Country: None (occurrence: None)
  Receive Date: 20081208
  Receipt Date: 20080129
  Transmission Date: 20090506
  Serious: Yes (Other)
  Sender: FDA-Public Use
  Company Number: US-AMGEN-STX251084

PATIENT
  Sex: Female
  Weight: 61.7 kg

DRUGS (3)
  1. ENBREL [Suspect]
     Indication: RHEUMATOID ARTHRITIS
     Route: 058
     Dates: start: 20070901, end: 20071101
  2. METHOTREXATE [Concomitant]
     Indication: RHEUMATOID ARTHRITIS
  3. IMMUNOSUPPRESSANTS [Concomitant]

REACTIONS (7)
  - HEPATITIS B [None]
  - PYELONEPHRITIS [None]
  - RASH PRURITIC [None]
  - RHEUMATOID ARTHRITIS [None]
  - STAPHYLOCOCCAL INFECTION [None]
  - STOMATITIS [None]
  - STREPTOCOCCAL INFECTION [None]
